FAERS Safety Report 5020535-0 (Version None)
Quarter: 2006Q2

REPORT INFORMATION
  Report Type: 
  Country: None (occurrence: None)
  Receive Date: 20060607
  Receipt Date: 20060607
  Transmission Date: 20061013
  Serious: Yes (Life-Threatening, Hospitalization, Disabling)
  Sender: FDA-Public Use
  Company Number: None

PATIENT
  Age: 57 Year
  Sex: Male
  Weight: 76 kg

DRUGS (1)
  1. MORPHINE SULFATE [Suspect]
     Indication: PROCEDURAL PAIN
     Dosage: 3MG IN HOUR, 13.5MG  IN 24 HOUR  IV
     Route: 042
     Dates: start: 20050620, end: 20050620

REACTIONS (3)
  - DYSPNOEA [None]
  - HYPOXIA [None]
  - PNEUMONIA ASPIRATION [None]
